FAERS Safety Report 16367749 (Version 1)
Quarter: 2019Q2

REPORT INFORMATION
  Report Type: Spontaneous
  Country: SE (occurrence: SE)
  Receive Date: 20190529
  Receipt Date: 20190529
  Transmission Date: 20190711
  Serious: Yes (Hospitalization)
  Sender: FDA-Public Use
  Company Number: SE-BAYER-2019-101740

PATIENT
  Age: 37 Year
  Sex: Female
  Weight: 103 kg

DRUGS (3)
  1. CLARITINE 10 MG [Suspect]
     Active Substance: LORATADINE
     Indication: SEASONAL ALLERGY
     Dosage: 10 MG, UNK
     Dates: start: 199006, end: 201905
  2. OXIS [Concomitant]
     Active Substance: FORMOTEROL FUMARATE
  3. CLARITINE 10 MG [Suspect]
     Active Substance: LORATADINE
     Indication: SEASONAL ALLERGY

REACTIONS (25)
  - Diplopia [Recovering/Resolving]
  - Nervous system disorder [Recovering/Resolving]
  - Hypogeusia [Recovering/Resolving]
  - Hyposmia [Recovering/Resolving]
  - Fatigue [Recovering/Resolving]
  - Hyperacusis [Recovering/Resolving]
  - Salivary gland enlargement [Recovering/Resolving]
  - Back pain [Recovering/Resolving]
  - Sciatica [Recovering/Resolving]
  - Vision blurred [Recovering/Resolving]
  - Chest discomfort [Recovering/Resolving]
  - Muscle twitching [Recovering/Resolving]
  - Musculoskeletal stiffness [Recovering/Resolving]
  - Pruritus [Recovering/Resolving]
  - Paraesthesia [Recovering/Resolving]
  - Lymphadenopathy [Recovering/Resolving]
  - Neuralgia [Recovering/Resolving]
  - Visual impairment [Recovering/Resolving]
  - Photophobia [Recovering/Resolving]
  - Oropharyngeal pain [Recovering/Resolving]
  - Ear pain [Recovering/Resolving]
  - Peripheral swelling [Recovering/Resolving]
  - Swelling of eyelid [Recovering/Resolving]
  - Muscular weakness [Recovering/Resolving]
  - Headache [Recovering/Resolving]

NARRATIVE: CASE EVENT DATE: 2011
